FAERS Safety Report 25006242 (Version 1)
Quarter: 2025Q1

REPORT INFORMATION
  Report Type: Spontaneous
  Country: US (occurrence: US)
  Receive Date: 20250224
  Receipt Date: 20250224
  Transmission Date: 20250408
  Serious: Yes (Other)
  Sender: BRISTOL-MYERS SQUIBB COMPANY
  Company Number: US-BRISTOL-MYERS SQUIBB COMPANY-2025-023147

PATIENT
  Age: 52 Year
  Sex: Female

DRUGS (11)
  1. REVLIMID [Suspect]
     Active Substance: LENALIDOMIDE
     Indication: Follicular lymphoma
     Dosage: ON DAYS 1-21 OF 28 DAY CYCLE
     Route: 048
     Dates: start: 20241007, end: 20250213
  2. OMEPRAZOLE [Concomitant]
     Active Substance: OMEPRAZOLE
  3. ALBUTEROL SULFATE [Concomitant]
     Active Substance: ALBUTEROL SULFATE
  4. ATORVASTATIN [Concomitant]
     Active Substance: ATORVASTATIN
  5. CLONAZEPAM [Concomitant]
     Active Substance: CLONAZEPAM
  6. EMPAVELI [Concomitant]
     Active Substance: PEGCETACOPLAN
  7. JARDIANCE [Concomitant]
     Active Substance: EMPAGLIFLOZIN
  8. FUROSEMIDE [Concomitant]
     Active Substance: FUROSEMIDE
  9. PROGESTERONE [Concomitant]
     Active Substance: PROGESTERONE
  10. LIOTHYRONINE [Concomitant]
     Active Substance: LIOTHYRONINE
  11. TOPIRAMATE [Concomitant]
     Active Substance: TOPIRAMATE

REACTIONS (1)
  - Malignant neoplasm progression [Unknown]

NARRATIVE: CASE EVENT DATE: 20250213
